FAERS Safety Report 6343586-2 (Version None)
Quarter: 2009Q3

REPORT INFORMATION
  Report Type: 
  Country: None (occurrence: None)
  Receive Date: 20090908
  Receipt Date: 20090703
  Transmission Date: 20100115
  Serious: Yes (Hospitalization, Other)
  Sender: FDA-Public Use
  Company Number: CA-PFIZER INC-2009217296

PATIENT
  Age: 42 Year

DRUGS (6)
  1. ZELDOX [Suspect]
     Indication: BIPOLAR DISORDER
     Dosage: 80 MG, 1X/DAY
     Route: 048
     Dates: start: 20090501, end: 20090501
  2. ZELDOX [Suspect]
     Indication: SCHIZOPHRENIA
     Dosage: 80 MG, 2X/DAY
     Dates: start: 20090101, end: 20090101
  3. ZELDOX [Suspect]
     Dosage: 60 MG, 2X/DAY
     Dates: start: 20090501
  4. GAMMA-AMINOBUTYRIC ACID [Concomitant]
     Indication: DEPRESSION
  5. SEROTONIN [Concomitant]
     Indication: DEPRESSION
  6. RISPERDAL [Concomitant]

REACTIONS (21)
  - AGGRESSION [None]
  - ANTISOCIAL BEHAVIOUR [None]
  - CONFUSIONAL STATE [None]
  - COORDINATION ABNORMAL [None]
  - CRYING [None]
  - DECREASED APPETITE [None]
  - DIZZINESS [None]
  - EMOTIONAL DISORDER [None]
  - FALL [None]
  - HALLUCINATION, AUDITORY [None]
  - HOSTILITY [None]
  - KETOACIDOSIS [None]
  - LOSS OF CONSCIOUSNESS [None]
  - MUSCLE CONTRACTURE [None]
  - OBSESSIVE THOUGHTS [None]
  - PARKINSONIAN GAIT [None]
  - POLYDIPSIA [None]
  - PSYCHOMOTOR HYPERACTIVITY [None]
  - STARING [None]
  - VISUAL IMPAIRMENT [None]
  - WEIGHT DECREASED [None]
